FAERS Safety Report 6213284-4 (Version None)
Quarter: 2009Q2

REPORT INFORMATION
  Report Type: 
  Country: None (occurrence: None)
  Receive Date: 20090603
  Receipt Date: 20090527
  Transmission Date: 20091009
  Serious: Yes (Hospitalization)
  Sender: FDA-Public Use
  Company Number: US-MERCK-0812USA01746

PATIENT
  Age: 70 Year
  Sex: Female

DRUGS (1)
  1. FOSAMAX [Suspect]
     Indication: OSTEOPOROSIS
     Route: 048
     Dates: start: 20050101, end: 20070101

REACTIONS (20)
  - ATROPHY [None]
  - CONTUSION [None]
  - DENTAL CARIES [None]
  - FAILURE OF IMPLANT [None]
  - FOOT FRACTURE [None]
  - FRACTURE NONUNION [None]
  - INFECTION [None]
  - JAW DISORDER [None]
  - JOINT EFFUSION [None]
  - JOINT SPRAIN [None]
  - MENISCUS LESION [None]
  - MONARTHRITIS [None]
  - MUSCLE STRAIN [None]
  - PAIN [None]
  - PERIODONTAL DISEASE [None]
  - RESORPTION BONE INCREASED [None]
  - ROAD TRAFFIC ACCIDENT [None]
  - SWELLING [None]
  - TOOTH DISORDER [None]
  - TOOTH LOSS [None]
